FAERS Safety Report 6816603-0 (Version None)
Quarter: 2010Q2

REPORT INFORMATION
  Report Type: 
  Country: None (occurrence: None)
  Receive Date: 20100630
  Receipt Date: 20100621
  Transmission Date: 20101027
  Serious: Yes (Other)
  Sender: FDA-Public Use
  Company Number: 2010EU002262

PATIENT
  Age: 76 Year
  Sex: Female
  Weight: 85 kg

DRUGS (4)
  1. PROTOPIC [Suspect]
     Indication: DERMATITIS ATOPIC
     Dosage: 1 DF, /D, CUTANEOUS
     Route: 003
     Dates: start: 20090601, end: 20100601
  2. PREDNISOLONE [Concomitant]
  3. CUTIVATE (FLUTICASONE PROPIONATE) [Concomitant]
  4. NEORAL [Concomitant]

REACTIONS (2)
  - LYMPHADENOPATHY [None]
  - NODULE [None]
